FAERS Safety Report 8923993 (Version 1)
Quarter: 2012Q4

REPORT INFORMATION
  Report Type: Spontaneous
  Country: ES (occurrence: None)
  Receive Date: 20121116
  Receipt Date: 20121116
  Transmission Date: 20130627
  Serious: Yes (Death)
  Sender: FDA-Public Use
  Company Number: 1483371

PATIENT
  Age: 70 Year
  Sex: Male

DRUGS (3)
  1. OXALIPLATIN [Suspect]
     Indication: OESOPHAGEAL CARCINOMA
     Dosage: cyclical
     Route: 041
     Dates: start: 20120507
  2. FARMORUBICINA [Suspect]
     Indication: OESOPHAGEAL CARCINOMA
     Dosage: cyclical
     Route: 040
     Dates: start: 20120507
  3. XELODA [Suspect]
     Indication: OESOPHAGEAL CARCINOMA
     Route: 048
     Dates: start: 20120507

REACTIONS (7)
  - Renal failure [None]
  - Diarrhoea [None]
  - Vomiting [None]
  - Hyponatraemia [None]
  - Neutropenia [None]
  - Radiation mucositis [None]
  - Thrombocytopenia [None]
